FAERS Safety Report 10658368 (Version 1)
Quarter: 2014Q4

REPORT INFORMATION
  Report Type: Spontaneous
  Country: US (occurrence: None)
  Receive Date: 20141205
  Receipt Date: 20141205
  Transmission Date: 20150529
  Serious: Yes (Other)
  Sender: FDA-Public Use
  Company Number: USA-2014100487

PATIENT
  Age: 89 Year
  Sex: Female

DRUGS (2)
  1. BENADRYL (UNKNOWN) [Concomitant]
  2. POMALYST [Suspect]
     Active Substance: POMALIDOMIDE
     Indication: PLASMA CELL MYELOMA
     Dosage: 2 MG, 21 IN 21 D, PO?
     Route: 048
     Dates: start: 20140929, end: 20141027

REACTIONS (6)
  - Cough [None]
  - Gait disturbance [None]
  - Asthenia [None]
  - Dyspnoea [None]
  - Decreased appetite [None]
  - Pruritus [None]

NARRATIVE: CASE EVENT DATE: 2014
